FAERS Safety Report 7566922-8 (Version None)
Quarter: 2011Q2

REPORT INFORMATION
  Report Type: 
  Country: None (occurrence: None)
  Receive Date: 20110623
  Receipt Date: 20110608
  Transmission Date: 20111010
  Serious: Yes (Hospitalization)
  Sender: FDA-Public Use
  Company Number: LV-RANBAXY-2011RR-45376

PATIENT
  Age: 49 Year
  Sex: Male
  Weight: 58 kg

DRUGS (1)
  1. MIDAZOLAM HCL [Suspect]
     Indication: PREMEDICATION
     Dosage: 2.5 MG, UNK
     Route: 042
     Dates: start: 20110318

REACTIONS (5)
  - CHILLS [None]
  - TREMOR [None]
  - HYPERTONIA [None]
  - CONVULSION [None]
  - MUSCLE SPASMS [None]
